FAERS Safety Report 6378673-6 (Version None)
Quarter: 2009Q3

REPORT INFORMATION
  Report Type: 
  Country: None (occurrence: None)
  Receive Date: 20090928
  Receipt Date: 20090916
  Transmission Date: 20100115
  Serious: Yes (Disabling)
  Sender: FDA-Public Use
  Company Number: GB-ROCHE-657030

PATIENT
  Age: 57 Year
  Sex: Female

DRUGS (3)
  1. TAMIFLU [Suspect]
     Indication: DRUG USE FOR UNKNOWN INDICATION
     Route: 065
     Dates: start: 20090625, end: 20090630
  2. LEVOTHYROXIN-SODIUM [Concomitant]
  3. CANDESARTAN CILEXETIL [Concomitant]

REACTIONS (4)
  - ANXIETY [None]
  - DEPRESSED MOOD [None]
  - POOR QUALITY SLEEP [None]
  - TEARFULNESS [None]
